FAERS Safety Report 7333722-3 (Version None)
Quarter: 2011Q1

REPORT INFORMATION
  Report Type: 
  Country: None (occurrence: None)
  Receive Date: 20110306
  Receipt Date: 20110211
  Transmission Date: 20110831
  Serious: No
  Sender: FDA-Public Use
  Company Number: US-BAYER-2011-014892

PATIENT
  Sex: Female
  Weight: 91 kg

DRUGS (3)
  1. LISINOPRIL [Concomitant]
     Dosage: UNK UNK, ONCE
     Route: 048
  2. ALEVE (CAPLET) [Suspect]
     Indication: ARTHRITIS
     Dosage: DAILY, ONCE
     Route: 048
     Dates: start: 20110208, end: 20110208
  3. INSULIN [Concomitant]

REACTIONS (2)
  - ABDOMINAL PAIN UPPER [None]
  - INSOMNIA [None]
